FAERS Safety Report 10449052 (Version 1)
Quarter: 2014Q3

REPORT INFORMATION
  Report Type: Spontaneous
  Country: US (occurrence: None)
  Receive Date: 20140911
  Receipt Date: 20140911
  Transmission Date: 20150326
  Serious: Yes (Death, Life-Threatening, Hospitalization, Disabling, Other)
  Sender: FDA-Public Use
  Company Number: None

PATIENT
  Age: 59 Year
  Sex: Male
  Weight: 85.73 kg

DRUGS (1)
  1. ACTONEL [Suspect]
     Active Substance: RISEDRONATE SODIUM
     Indication: BACK DISORDER
     Dosage: 1 PILL, ONCE A MONTH, TAKEN BY MOUTH
     Route: 048
     Dates: start: 20131130, end: 20140330

REACTIONS (1)
  - Leukaemia [None]

NARRATIVE: CASE EVENT DATE: 20140416
